FAERS Safety Report 20526100 (Version 2)
Quarter: 2023Q1

REPORT INFORMATION
  Report Type: Report from Study
  Country: FR (occurrence: FR)
  Receive Date: 20220228
  Receipt Date: 20230104
  Transmission Date: 20230418
  Serious: Yes (Hospitalization)
  Sender: FDA-Public Use
  Company Number: FR-PFIZER INC-202200274990

PATIENT
  Age: 74 Year
  Sex: Male
  Weight: 70 kg

DRUGS (5)
  1. BEVACIZUMAB [Suspect]
     Active Substance: BEVACIZUMAB
     Dosage: 525 MG, DAILY
     Route: 042
     Dates: start: 20211207, end: 20211207
  2. LANSOPRAZOLE [Concomitant]
     Active Substance: LANSOPRAZOLE
     Dosage: 30 UNK, 1X/DAY IN THE MORNING
  3. SODIUM ALGINATE\SODIUM BICARBONATE [Concomitant]
     Active Substance: SODIUM ALGINATE\SODIUM BICARBONATE
     Dosage: 1 BAG, AS NEEDED, 3X/DAY
  4. CEFOTAXIME [Concomitant]
     Active Substance: CEFOTAXIME SODIUM
     Indication: Antibiotic therapy
     Dosage: 2 G, 1X/DAY
     Route: 002
     Dates: start: 20211209, end: 20211211
  5. PIPERACILLIN [Concomitant]
     Active Substance: PIPERACILLIN
     Indication: Antibiotic therapy
     Dosage: 4 G, 1X/DAY
     Dates: start: 20211210, end: 20211214

REACTIONS (1)
  - Cholecystitis acute [Recovered/Resolved]

NARRATIVE: CASE EVENT DATE: 20211226
